FAERS Safety Report 23908940 (Version 1)
Quarter: 2024Q2

REPORT INFORMATION
  Report Type: Spontaneous
  Country: US (occurrence: US)
  Receive Date: 20240528
  Receipt Date: 20240528
  Transmission Date: 20240716
  Serious: No
  Sender: FDA-Public Use
  Company Number: US-HIKMA PHARMACEUTICALS USA INC.-US-H14001-24-02935

PATIENT
  Age: 70 Year
  Sex: Male

DRUGS (1)
  1. TESTOSTERONE CYPIONATE [Suspect]
     Active Substance: TESTOSTERONE CYPIONATE
     Indication: Blood testosterone decreased
     Dosage: 1 MILLILITER, WEEKLY
     Route: 058

REACTIONS (6)
  - Urticaria [Unknown]
  - Injection site nodule [Recovered/Resolved]
  - Condition aggravated [Unknown]
  - Injection site erythema [Unknown]
  - Injection site pruritus [Unknown]
  - Product administered at inappropriate site [Unknown]
